FAERS Safety Report 6408147-5 (Version None)
Quarter: 2009Q4

REPORT INFORMATION
  Report Type: 
  Country: None (occurrence: None)
  Receive Date: 20091021
  Receipt Date: 20091014
  Transmission Date: 20100525
  Serious: Yes (Death)
  Sender: FDA-Public Use
  Company Number: JP-ASTRAZENECA-2009SE13993

PATIENT
  Age: 16769 Day
  Sex: Male

DRUGS (5)
  1. MEROPEN [Suspect]
     Indication: MYOCARDIAL RUPTURE
     Route: 041
     Dates: start: 20090816, end: 20090824
  2. ALEVIATIN [Suspect]
     Indication: MYOCARDIAL RUPTURE
     Route: 042
     Dates: start: 20090815, end: 20090820
  3. CEFAMEZIN [Concomitant]
     Dates: start: 20090725, end: 20090731
  4. PENTCILLIN [Concomitant]
     Dates: start: 20090721, end: 20090810
  5. FIRSTCIN [Concomitant]
     Dates: start: 20090811, end: 20090814

REACTIONS (1)
  - TOXIC EPIDERMAL NECROLYSIS [None]
